FAERS Safety Report 16143958 (Version 1)
Quarter: 2019Q2

REPORT INFORMATION
  Report Type: Report from Study
  Country: US (occurrence: US)
  Receive Date: 20190401
  Receipt Date: 20190401
  Transmission Date: 20190711
  Serious: Yes (Hospitalization)
  Sender: FDA-Public Use
  Company Number: US-ACTELION-A-US2018-183091

PATIENT
  Sex: Female

DRUGS (8)
  1. LEVOTHYROXINE. [Concomitant]
     Active Substance: LEVOTHYROXINE
     Dosage: 15 MCG, UNK
  2. OXYGEN. [Concomitant]
     Active Substance: OXYGEN
  3. OPSUMIT [Suspect]
     Active Substance: MACITENTAN
     Indication: PULMONARY ARTERIAL HYPERTENSION
     Dosage: 10 MG, UNK
     Route: 048
     Dates: start: 20181105
  4. ADEMPAS [Concomitant]
     Active Substance: RIOCIGUAT
  5. LASIX [Concomitant]
     Active Substance: FUROSEMIDE
     Dosage: 80 MG, UNK
  6. WARFARIN [Concomitant]
     Active Substance: WARFARIN
     Dosage: UNK
     Dates: start: 2007
  7. POTASSIUM [Concomitant]
     Active Substance: POTASSIUM
     Dosage: 40 MEQ, UNK
  8. SPIRONOLACTONE. [Concomitant]
     Active Substance: SPIRONOLACTONE
     Dosage: 25 MG, UNK
     Dates: start: 201810

REACTIONS (7)
  - Thromboembolectomy [Unknown]
  - Nasal congestion [Not Recovered/Not Resolved]
  - Headache [Not Recovered/Not Resolved]
  - Dyspnoea [Unknown]
  - Pulmonary embolism [Recovered/Resolved]
  - Dizziness [Unknown]
  - Condition aggravated [Unknown]
